FAERS Safety Report 13396252 (Version 1)
Quarter: 2017Q2

REPORT INFORMATION
  Report Type: Spontaneous
  Country: US (occurrence: US)
  Receive Date: 20170403
  Receipt Date: 20170403
  Transmission Date: 20170830
  Serious: No
  Sender: FDA-Public Use
  Company Number: US-BAYER-2017-062290

PATIENT
  Age: 73 Year
  Sex: Female

DRUGS (1)
  1. GADAVIST [Suspect]
     Active Substance: GADOBUTROL
     Indication: IMAGING PROCEDURE
     Dosage: 6.5 ML, ONCE
     Route: 042
     Dates: start: 20170328, end: 20170328

REACTIONS (3)
  - Contrast media allergy [None]
  - Conjunctivitis [None]
  - Sneezing [None]

NARRATIVE: CASE EVENT DATE: 20170328
